FAERS Safety Report 15006961 (Version 2)
Quarter: 2018Q2

REPORT INFORMATION
  Report Type: Spontaneous
  Country: KR (occurrence: KR)
  Receive Date: 20180613
  Receipt Date: 20180619
  Transmission Date: 20180711
  Serious: Yes (Other)
  Sender: FDA-Public Use
  Company Number: KR-ASTRAZENECA-2018SE75865

PATIENT
  Age: 281 Month
  Sex: Female

DRUGS (3)
  1. SYMBICORT [Suspect]
     Active Substance: BUDESONIDE\FORMOTEROL FUMARATE DIHYDRATE
     Indication: ASTHMA
     Dosage: 160/4.5 UG TWO TIMES A DAY
     Route: 055
     Dates: start: 201705
  2. MONTELUKAST [Concomitant]
     Active Substance: MONTELUKAST SODIUM
     Indication: ASTHMA
  3. DEPAS [Concomitant]
     Active Substance: ETIZOLAM
     Indication: ABDOMINAL PAIN

REACTIONS (8)
  - Dizziness [Not Recovered/Not Resolved]
  - Face oedema [Unknown]
  - Asthenia [Not Recovered/Not Resolved]
  - Tremor [Unknown]
  - Asthmatic crisis [Unknown]
  - Palpitations [Unknown]
  - Headache [Unknown]
  - Drug ineffective [Unknown]

NARRATIVE: CASE EVENT DATE: 201805
